FAERS Safety Report 8488684-2 (Version None)
Quarter: 2012Q3

REPORT INFORMATION
  Report Type: 
  Country: None (occurrence: None)
  Receive Date: 20120705
  Receipt Date: 20120626
  Transmission Date: 20120928
  Serious: Yes (Hospitalization)
  Sender: FDA-Public Use
  Company Number: ES-B.I. PHARMACEUTICALS,INC./RIDGEFIELD-2012-ES-00268ES

PATIENT
  Age: 84 Year
  Sex: Male

DRUGS (13)
  1. CLOPIDOGREL [Suspect]
     Dates: start: 20110418
  2. PRADAXA [Suspect]
     Indication: CARDIOVASCULAR EVENT PROPHYLAXIS
     Dosage: 220 MG
     Route: 048
     Dates: start: 20100401, end: 20110410
  3. PULMICORT [Concomitant]
  4. DENUBIL [Concomitant]
  5. ATROVENT [Concomitant]
  6. BRONCORAL [Concomitant]
  7. CLOPIDOGREL [Suspect]
     Indication: CARDIOVASCULAR EVENT PROPHYLAXIS
     Dosage: 75 MG
     Route: 048
     Dates: end: 20110410
  8. RANITIDINE HCL [Concomitant]
     Indication: PROPHYLAXIS AGAINST GASTROINTESTINAL ULCER
     Dosage: 300 MG
     Route: 048
  9. ASPIRIN [Suspect]
     Indication: CARDIOVASCULAR EVENT PROPHYLAXIS
     Dosage: 300 MG
     Route: 048
     Dates: end: 20110410
  10. INDAPAMIDE [Concomitant]
     Indication: HYPERTENSION
     Dosage: 2.5 MG
     Route: 048
     Dates: start: 20070101, end: 20110410
  11. ACETAMINOPHEN [Concomitant]
  12. BISOPROLOL FUMARATE [Concomitant]
  13. ATORVASTATIN CALCIUM [Concomitant]
     Indication: HYPERLIPIDAEMIA
     Dosage: 75 MG
     Route: 048

REACTIONS (4)
  - LOWER GASTROINTESTINAL HAEMORRHAGE [None]
  - DIZZINESS [None]
  - ABDOMINAL PAIN [None]
  - DRUG INTERACTION [None]
